FAERS Safety Report 8846456 (Version 1)
Quarter: 2012Q4

REPORT INFORMATION
  Report Type: 
  Country: US (occurrence: US)
  Receive Date: 20121017
  Receipt Date: 20121017
  Transmission Date: 20130627
  Serious: No
  Sender: FDA-Public Use
  Company Number: US-VERTEX PHARMACEUTICAL INC.-2012-022651

PATIENT
  Sex: Male
  Weight: 88 kg

DRUGS (11)
  1. VX-950 [Suspect]
     Indication: HEPATITIS C
     Dosage: 750 mg, tid
     Route: 048
     Dates: start: 20120912
  2. RIBASPHERE [Concomitant]
     Indication: HEPATITIS C
     Dosage: UNK, bid
     Dates: start: 20120912
  3. FOLIC ACID [Concomitant]
     Dosage: 1 mg, qd
     Route: 048
     Dates: start: 20120909
  4. ADVAIR [Concomitant]
     Dosage: 500 mg, bid
     Dates: start: 20120909
  5. NEXIUM                             /01479302/ [Concomitant]
     Dosage: 40 mg, qd
     Route: 048
     Dates: start: 20120909
  6. ALBUTEROL                          /00139501/ [Concomitant]
     Dosage: 2.5 mg, qid
     Route: 048
  7. CAFFEINE CITRATE [Concomitant]
     Dosage: 60 mg, qd
     Route: 048
  8. VITAMIN B COMPLEX                  /02948601/ [Concomitant]
     Dosage: 1 DF, UNK
  9. FIORICET [Concomitant]
     Dosage: 415 mg, bid
     Route: 048
  10. ALBUTEROL SULFATE [Concomitant]
     Dosage: 90 ?g, UNK
  11. MULTIVITAMINS [Concomitant]
     Route: 048

REACTIONS (4)
  - Amnesia [Unknown]
  - Visual acuity reduced [Unknown]
  - Headache [Unknown]
  - Irritability [Unknown]
